FAERS Safety Report 19764058 (Version 2)
Quarter: 2021Q3

REPORT INFORMATION
  Report Type: Report from Study
  Country: KR (occurrence: KR)
  Receive Date: 20210830
  Receipt Date: 20210913
  Transmission Date: 20211014
  Serious: Yes (Hospitalization, Other)
  Sender: FDA-Public Use
  Company Number: KR-TAKEDA-2021TUS052487

PATIENT
  Age: 48 Year
  Sex: Female
  Weight: 49 kg

DRUGS (37)
  1. ZYLORIC [Concomitant]
     Active Substance: ALLOPURINOL
     Dosage: 300 MILLIGRAM
     Route: 065
  2. ANAPROX [Concomitant]
     Active Substance: NAPROXEN SODIUM
     Dosage: 275 MILLIGRAM
     Route: 065
  3. COUGH NOS [Concomitant]
     Active Substance: DEXTROMETHORPHAN HYDROBROMIDE OR DEXTROMETHORPHAN HYDROBROMIDE\DOXYLAMINE SUCCINATE OR DEXTROMETHORPHAN HYDROBROMIDE\GUAIFENESIN OR GUAIFENESIN
     Dosage: UNK
     Route: 065
  4. GELMA [Concomitant]
     Dosage: UNK
     Route: 065
  5. MEDILAC DS [Concomitant]
     Dosage: UNK
     Route: 065
  6. MOSAONE [Concomitant]
     Dosage: 5 MILLIGRAM
     Route: 065
  7. ACETPHEN PREMIX [Concomitant]
     Dosage: 100 MILLILITER
     Route: 065
  8. MAXIPIME [Concomitant]
     Active Substance: CEFEPIME HYDROCHLORIDE
     Dosage: 1 GRAM
     Route: 065
  9. TABAXIN [Concomitant]
     Active Substance: PIPERACILLIN SODIUM\TAZOBACTAM SODIUM
     Dosage: 4.5 GRAM
     Route: 065
  10. TAPOCIN [Concomitant]
     Dosage: 400 MILLIGRAM
     Route: 065
  11. DEXAMETHASONE. [Suspect]
     Active Substance: DEXAMETHASONE
     Indication: PLASMA CELL MYELOMA
     Dosage: 40 MILLIGRAM, BID
     Route: 048
     Dates: start: 20210721, end: 20210811
  12. CYTOTEC [Concomitant]
     Active Substance: MISOPROSTOL
     Dosage: 200 MICROGRAM
     Route: 065
  13. GANAKHAN [Concomitant]
     Dosage: 50 MILLIGRAM
     Route: 065
  14. URSA [Concomitant]
     Active Substance: URSODIOL
     Dosage: 200 MILLIGRAM
     Route: 065
  15. K?CONTIN CONTINUS [Concomitant]
     Dosage: UNK
     Route: 065
  16. AVELOX [Concomitant]
     Active Substance: MOXIFLOXACIN HYDROCHLORIDE
     Dosage: 400 MILLIGRAM
     Route: 065
  17. GODEX [Concomitant]
     Dosage: UNK
     Route: 065
  18. ERDOS [Concomitant]
     Active Substance: ERDOSTEINE
     Dosage: UNK
     Route: 065
  19. MASI [Concomitant]
     Dosage: 20 MILLILITER
     Route: 065
  20. IXAZOMIB [Suspect]
     Active Substance: IXAZOMIB
     Indication: PLASMA CELL MYELOMA
     Dosage: 4 MILLIGRAM, QD
     Route: 048
     Dates: start: 20210721, end: 20210804
  21. LENALIDOMIDE [Suspect]
     Active Substance: LENALIDOMIDE
     Indication: PLASMA CELL MYELOMA
     Dosage: 25 MILLIGRAM, QD
     Route: 048
     Dates: start: 20210721, end: 20210810
  22. TRITTICO [Concomitant]
     Active Substance: TRAZODONE HYDROCHLORIDE
     Dosage: 25 MILLIGRAM
     Route: 065
  23. ASPIRIN PROTECT [Concomitant]
     Active Substance: ASPIRIN
     Dosage: 100 MILLIGRAM
     Route: 065
  24. ESOMEPRAZOLE. [Concomitant]
     Active Substance: ESOMEPRAZOLE MAGNESIUM
     Dosage: 20 MILLIGRAM
     Route: 065
  25. METHYLON [Concomitant]
     Active Substance: METHYLPREDNISOLONE
     Dosage: 4 MILLIGRAM
     Route: 065
  26. TWOLION [Concomitant]
     Dosage: UNK
     Route: 065
  27. MACPERAN [Concomitant]
     Active Substance: METOCLOPRAMIDE HYDROCHLORIDE
     Dosage: 2 MILLILITER
     Route: 065
  28. SK ALBUMIN [Concomitant]
     Dosage: 100 MILLILITER
     Route: 065
  29. SHUMACTON [Concomitant]
     Dosage: 20 MILLILITER
     Route: 065
  30. GRASIN [Concomitant]
     Dosage: UNK
     Route: 065
  31. LASIX [Concomitant]
     Active Substance: FUROSEMIDE
     Dosage: UNK
     Route: 065
  32. ACYCLOVIR. [Concomitant]
     Active Substance: ACYCLOVIR
     Dosage: 200 MILLIGRAM
     Route: 065
  33. DONGA ACETAMINOPHEN [Concomitant]
     Dosage: 20 MILLIGRAM
     Route: 065
  34. STILNOX [Concomitant]
     Active Substance: ZOLPIDEM TARTRATE
     Dosage: 10 MILLIGRAM
     Route: 065
  35. TACENOL 8HOURS ER [Concomitant]
     Dosage: 650 MILLIGRAM
     Route: 065
  36. SEPTRIN [Concomitant]
     Active Substance: SULFAMETHOXAZOLE\TRIMETHOPRIM
     Dosage: UNK
     Route: 065
  37. HEPA?MERZ [Concomitant]
     Dosage: UNK
     Route: 065

REACTIONS (1)
  - Pneumonia [Recovered/Resolved]

NARRATIVE: CASE EVENT DATE: 20210807
